FAERS Safety Report 12576043 (Version 2)
Quarter: 2016Q4

REPORT INFORMATION
  Report Type: Spontaneous
  Country: JP (occurrence: JP)
  Receive Date: 20160720
  Receipt Date: 20161004
  Transmission Date: 20170207
  Serious: Yes (Death)
  Sender: FDA-Public Use
  Company Number: JP-SEATTLE GENETICS-2016SGN01147

PATIENT

DRUGS (3)
  1. ADRIACIN [Suspect]
     Active Substance: DOXORUBICIN HYDROCHLORIDE
     Indication: HODGKIN^S DISEASE
     Dosage: 28 MG, UNK
     Route: 050
     Dates: start: 20160626
  2. ADCETRIS [Suspect]
     Active Substance: BRENTUXIMAB VEDOTIN
     Indication: HODGKIN^S DISEASE
     Dosage: 100 MG, Q3WEEKS
     Route: 041
     Dates: start: 20160630, end: 20160630
  3. VINBLASTINE [Suspect]
     Active Substance: VINBLASTINE
     Indication: HODGKIN^S DISEASE
     Dosage: 4 MG, UNK
     Route: 050
     Dates: start: 20160626

REACTIONS (1)
  - Shock [Fatal]

NARRATIVE: CASE EVENT DATE: 20160714
